FAERS Safety Report 15320017 (Version 1)
Quarter: 2018Q3

REPORT INFORMATION
  Report Type: Spontaneous
  Country: FR (occurrence: FR)
  Receive Date: 20180827
  Receipt Date: 20180827
  Transmission Date: 20181010
  Serious: Yes (Hospitalization)
  Sender: FDA-Public Use
  Company Number: FR-ELI_LILLY_AND_COMPANY-FR201808006671

PATIENT
  Age: 78 Year
  Sex: Male

DRUGS (14)
  1. UROREC [Concomitant]
     Active Substance: SILODOSIN
     Dosage: UNK
  2. NORMACOL                           /06843301/ [Concomitant]
     Active Substance: FRANGULA ALNUS BARK\KARAYA GUM
     Dosage: UNK
  3. FUROSEMIDE. [Concomitant]
     Active Substance: FUROSEMIDE
     Dosage: UNK
  4. ACIDE FOLIQUE [Concomitant]
     Active Substance: FOLIC ACID
     Dosage: UNK
  5. GRANOCYTE [Suspect]
     Active Substance: LENOGRASTIM
     Indication: NEUTROPENIA
     Dosage: 33 MILLION IU, UNKNOWN
     Route: 042
     Dates: start: 20180323
  6. CARBOPLATIN/HOSPIRA [Suspect]
     Active Substance: CARBOPLATIN
     Indication: LUNG ADENOCARCINOMA
     Dosage: 426 MG, UNK
     Route: 041
     Dates: start: 20180228
  7. PARACETAMOL [Concomitant]
     Active Substance: ACETAMINOPHEN
     Dosage: UNK
  8. AVODART [Concomitant]
     Active Substance: DUTASTERIDE
     Dosage: UNK
  9. MACROGOL [Concomitant]
     Active Substance: POLYETHYLENE GLYCOLS
     Dosage: UNK
  10. ALIMTA [Suspect]
     Active Substance: PEMETREXED DISODIUM
     Indication: LUNG ADENOCARCINOMA
     Dosage: 805 MG, UNK
     Route: 041
     Dates: start: 20180228
  11. ATARAX [Concomitant]
     Active Substance: HYDROXYZINE HYDROCHLORIDE
     Dosage: UNK
  12. CLORIDRATO DE TRAMADOL [Concomitant]
     Dosage: UNK
  13. SOLUPRED                           /00016201/ [Concomitant]
     Active Substance: PREDNISOLONE
     Dosage: UNK
  14. PHOSPHORE                          /00859901/ [Concomitant]
     Dosage: UNK

REACTIONS (1)
  - Weber-Christian disease [Not Recovered/Not Resolved]

NARRATIVE: CASE EVENT DATE: 20180607
